FAERS Safety Report 10527087 (Version 9)
Quarter: 2021Q3

REPORT INFORMATION
  Report Type: Spontaneous
  Country: DE (occurrence: DE)
  Receive Date: 20141020
  Receipt Date: 20210820
  Transmission Date: 20211014
  Serious: Yes (Other)
  Sender: FDA-Public Use
  Company Number: DE-AUROBINDO-AUR-APL-2014-03804

PATIENT
  Age: 41 Year
  Sex: Male

DRUGS (12)
  1. URSODEOXYCHOLIC ACID [Concomitant]
     Active Substance: URSODIOL
     Indication: HYPERBILIRUBINAEMIA
     Dosage: UNK
     Route: 065
  2. METFORMIN [Suspect]
     Active Substance: METFORMIN HYDROCHLORIDE
     Dosage: LAST ADMINISTRATION DOSE WAS ON 2013
     Route: 048
     Dates: end: 2013
  3. METFORMIN [Suspect]
     Active Substance: METFORMIN HYDROCHLORIDE
     Dosage: 1200 MILLIGRAM
     Route: 048
  4. PREDNISOLONE. [Concomitant]
     Active Substance: PREDNISOLONE
     Dosage: 250 MG, QD
     Route: 065
  5. THIOCTIC ACID [Concomitant]
     Active Substance: .ALPHA.-LIPOIC ACID
     Indication: DEAFNESS NEUROSENSORY
     Dosage: UNKNOWN
     Route: 016
  6. PREDNISOLONE. [Concomitant]
     Active Substance: PREDNISOLONE
     Dosage: 1000 MG, UNK
     Route: 065
  7. METFORMIN [Suspect]
     Active Substance: METFORMIN HYDROCHLORIDE
     Indication: TYPE 2 DIABETES MELLITUS
     Dosage: 1500 MILLIGRAM, ONCE A DAY
     Route: 048
     Dates: start: 2013, end: 2013
  8. PREDNISOLONE. [Concomitant]
     Active Substance: PREDNISOLONE
     Indication: DEAFNESS NEUROSENSORY
     Dosage: UNKNOWN
     Route: 016
  9. METFORMIN [Suspect]
     Active Substance: METFORMIN HYDROCHLORIDE
     Dosage: 500 MILLIGRAM, 3 TIMES A DAY
     Route: 065
  10. METFORMIN [Suspect]
     Active Substance: METFORMIN HYDROCHLORIDE
     Dosage: 4500 MILLIGRAM (1500 MG, TID)
     Route: 065
  11. INSULIN GLARGINE [Suspect]
     Active Substance: INSULIN GLARGINE
     Indication: TYPE 2 DIABETES MELLITUS
     Dosage: 500 MG,3 TIMES A DAY,
     Route: 016
  12. INSULIN GLARGINE [Suspect]
     Active Substance: INSULIN GLARGINE
     Dosage: UNK
     Route: 065

REACTIONS (18)
  - Idiosyncratic drug reaction [Recovering/Resolving]
  - Blood bilirubin increased [Unknown]
  - Alanine aminotransferase increased [Unknown]
  - Fatigue [Recovered/Resolved]
  - Blood alkaline phosphatase increased [Unknown]
  - Hepatic steatosis [Unknown]
  - Pruritus [Recovered/Resolved]
  - Aspartate aminotransferase increased [Unknown]
  - Rash [Recovered/Resolved]
  - Faeces discoloured [Recovered/Resolved]
  - Drug-induced liver injury [Recovered/Resolved]
  - Chromaturia [Recovered/Resolved]
  - Hepatitis cholestatic [Recovered/Resolved]
  - Eosinophilia [Recovering/Resolving]
  - Jaundice [Recovered/Resolved]
  - Gamma-glutamyltransferase increased [Unknown]
  - Scleral discolouration [Unknown]
  - Hepatitis [Recovered/Resolved]

NARRATIVE: CASE EVENT DATE: 2013
